FAERS Safety Report 5340671-9 (Version None)
Quarter: 2007Q2

REPORT INFORMATION
  Report Type: 
  Country: None (occurrence: None)
  Receive Date: 20070405
  Receipt Date: 20061211
  Transmission Date: 20071010
  Serious: No
  Sender: FDA-Public Use
  Company Number: US200612002527

PATIENT
  Sex: Female

DRUGS (2)
  1. CYMBALTA [Suspect]
     Dosage: 60 MG
     Dates: start: 20060101
  2. CYMBALTA [Suspect]
     Dosage: 60 MG
     Dates: start: 20061101

REACTIONS (2)
  - GASTROOESOPHAGEAL REFLUX DISEASE [None]
  - STOMATITIS [None]
